FAERS Safety Report 7585325-3 (Version None)
Quarter: 2011Q2

REPORT INFORMATION
  Report Type: 
  Country: None (occurrence: None)
  Receive Date: 20110628
  Receipt Date: 20110628
  Transmission Date: 20111010
  Serious: Yes (Death)
  Sender: FDA-Public Use
  Company Number: None

PATIENT
  Age: 62 Year
  Sex: Female

DRUGS (9)
  1. TIMOLOL [Concomitant]
  2. REVLIMID [Suspect]
     Indication: MULTIPLE MYELOMA
     Dosage: 20MG QD 21D/28D ORALLY
     Route: 048
     Dates: start: 20081001, end: 20090601
  3. REVLIMID [Suspect]
     Indication: MULTIPLE MYELOMA
     Dosage: 20MG QD 21D/28D ORALLY
     Route: 048
     Dates: start: 20101101, end: 20101201
  4. K-TAB [Concomitant]
  5. LEVOTHROID [Concomitant]
  6. WARFARIN SODIUM [Concomitant]
  7. DECADRON [Concomitant]
  8. FAMOTIDINE [Concomitant]
  9. LUMIGAN [Concomitant]

REACTIONS (2)
  - MALAISE [None]
  - CHEST PAIN [None]
